FAERS Safety Report 18799277 (Version 1)
Quarter: 2021Q1

REPORT INFORMATION
  Report Type: Spontaneous
  Country: US (occurrence: US)
  Receive Date: 20210128
  Receipt Date: 20210128
  Transmission Date: 20210419
  Serious: No
  Sender: FDA-Public Use
  Company Number: US-BAYER-2021-035501

PATIENT
  Sex: Female

DRUGS (3)
  1. MIRALAX [Suspect]
     Active Substance: POLYETHYLENE GLYCOL 3350
     Indication: CONSTIPATION
     Dosage: UNK
     Dates: start: 202101
  2. MAGNESIUM [Concomitant]
     Active Substance: MAGNESIUM
     Indication: BLOOD MAGNESIUM DECREASED
     Dosage: 500 MG, QD
     Dates: start: 202101
  3. LENVIMA [Concomitant]
     Active Substance: LENVATINIB
     Indication: ENDOMETRIAL CANCER
     Dosage: 20 MG, QD
     Dates: start: 20210111

REACTIONS (5)
  - Feeling cold [None]
  - Fatigue [None]
  - Asthenia [None]
  - Dysphonia [None]
  - Diarrhoea [None]

NARRATIVE: CASE EVENT DATE: 202101
